FAERS Safety Report 8050485-7 (Version None)
Quarter: 2011Q4

REPORT INFORMATION
  Report Type: 
  Country: None (occurrence: None)
  Receive Date: 20111212
  Receipt Date: 20111021
  Transmission Date: 20120403
  Serious: Yes (Other)
  Sender: FDA-Public Use
  Company Number: PHHY2010US67455

PATIENT
  Age: 49 Year
  Sex: Male

DRUGS (7)
  1. EXTAVIA [Suspect]
     Indication: MULTIPLE SCLEROSIS
     Dosage: 0.25 MG, QOD, SUBCUTANEOUS 0.25 MG, QOD, SUBCUTANEOUS 0.3 MG, QOD, SUBCUTANEOUS
     Route: 058
     Dates: start: 20100214
  2. NEURONTIN [Concomitant]
  3. PROZAC [Concomitant]
  4. GABAPENTIN [Concomitant]
  5. IMITREX ^CERENEX^ (SUMATRIPTAN SUCCINATE) [Concomitant]
  6. ACETAMINOPHEN [Concomitant]
  7. ALEVE /00256202/(NAPROXEN SODIUM) [Concomitant]

REACTIONS (11)
  - DIZZINESS [None]
  - DECREASED APPETITE [None]
  - DEPRESSION [None]
  - IMPAIRED HEALING [None]
  - WEIGHT DECREASED [None]
  - INSOMNIA [None]
  - FEELING ABNORMAL [None]
  - CONTUSION [None]
  - MUSCLE SPASMS [None]
  - MULTIPLE SCLEROSIS RELAPSE [None]
  - HYPOAESTHESIA [None]
